FAERS Safety Report 9741712 (Version 3)
Quarter: 2014Q1

REPORT INFORMATION
  Report Type: Spontaneous
  Country: JP (occurrence: JP)
  Receive Date: 20131210
  Receipt Date: 20140204
  Transmission Date: 20141002
  Serious: Yes (Death)
  Sender: FDA-Public Use
  Company Number: JP-JNJFOC-20131200375

PATIENT
  Sex: Female
  Weight: 34.93 kg

DRUGS (15)
  1. RISPERDAL CONSTA [Suspect]
     Indication: SCHIZOPHRENIA
     Route: 030
     Dates: start: 20130711, end: 20131031
  2. RISPERDAL CONSTA [Suspect]
     Indication: SCHIZOPHRENIA
     Dosage: ONCE 2 TO 4 WEEKS
     Route: 030
     Dates: start: 20101025, end: 20110427
  3. RISPERDAL CONSTA [Suspect]
     Indication: SCHIZOPHRENIA
     Dosage: ONCE 2 TO 4 WEEKS
     Route: 030
     Dates: start: 20110523, end: 20110606
  4. RISPERDAL CONSTA [Suspect]
     Indication: SCHIZOPHRENIA
     Dosage: ONCE 2 TO 4 WEEKS
     Route: 030
     Dates: start: 20110803, end: 20110803
  5. RISPERDAL CONSTA [Suspect]
     Indication: SCHIZOPHRENIA
     Dosage: ONCE 2 TO 4 WEEKS
     Route: 030
     Dates: start: 20110824, end: 20110920
  6. RISPERDAL CONSTA [Suspect]
     Indication: SCHIZOPHRENIA
     Dosage: ONCE 2 TO 4 WEEKS
     Route: 030
     Dates: start: 20111015, end: 20130123
  7. RISPERDAL CONSTA [Suspect]
     Indication: SCHIZOPHRENIA
     Dosage: ONCE 2 TO 4 WEEKS
     Route: 030
     Dates: start: 20130207, end: 20130626
  8. RISPERDAL CONSTA [Suspect]
     Indication: SCHIZOPHRENIA
     Dosage: ONCE 2 TO 4 WEEKS
     Route: 030
     Dates: start: 20100621, end: 20100916
  9. XEPLION [Suspect]
     Indication: SCHIZOPHRENIA
     Route: 030
     Dates: start: 20131122, end: 20131122
  10. ABILIFY [Concomitant]
     Indication: SCHIZOPHRENIA
     Route: 048
     Dates: start: 20130906, end: 20131122
  11. MAGLAX [Concomitant]
     Indication: CONSTIPATION
     Route: 048
     Dates: start: 20120719, end: 20131122
  12. SEROQUEL [Concomitant]
     Indication: SCHIZOPHRENIA
     Route: 048
     Dates: start: 20131031, end: 20131122
  13. BENZALIN [Concomitant]
     Indication: SCHIZOPHRENIA
     Route: 048
     Dates: start: 20070305, end: 20131122
  14. GOODMIN [Concomitant]
     Indication: SCHIZOPHRENIA
     Route: 048
     Dates: start: 20110606, end: 20131122
  15. SENNOSIDE [Concomitant]
     Indication: CONSTIPATION
     Route: 048
     Dates: start: 20061121, end: 20131122

REACTIONS (1)
  - Death [Fatal]
